FAERS Safety Report 8422224-9 (Version None)
Quarter: 2012Q2

REPORT INFORMATION
  Report Type: 
  Country: None (occurrence: None)
  Receive Date: 20120323
  Receipt Date: 20110329
  Transmission Date: 20120825
  Serious: Yes (Other)
  Sender: FDA-Public Use
  Company Number: 163-21880-11023149

PATIENT
  Age: 64 Year
  Sex: Male

DRUGS (22)
  1. METOPROLOL TARTRATE [Concomitant]
  2. ASPIRIN [Concomitant]
  3. CHOLECALCIFEROL (COLECALCIFEROL) [Concomitant]
  4. ALLOPURINOL [Concomitant]
  5. FINASTERIDE [Concomitant]
  6. LOSARTAN POTASSIUM [Concomitant]
  7. MULTIVITAMINS WITH MINERALS (MULTIVITAMINS WITH MINERALS) [Concomitant]
  8. TRAMADOL HCL [Concomitant]
  9. REVLIMID [Suspect]
     Indication: MULTIPLE MYELOMA
     Dosage: 25 MG, DAILY FOR 21 DAYS, PO, 10 MG, DAILY FOR 21 DAYS, PO
     Route: 048
     Dates: start: 20100218
  10. REVLIMID [Suspect]
     Indication: MULTIPLE MYELOMA
     Dosage: 25 MG, DAILY FOR 21 DAYS, PO, 10 MG, DAILY FOR 21 DAYS, PO
     Route: 048
     Dates: start: 20101218
  11. NIFEDIPINE [Concomitant]
  12. SPIRONOLACTONE [Concomitant]
  13. ONDANSETRON HCL (ONDANSETRON HYDROCHLORIDE) [Concomitant]
  14. GLYBURIDE [Concomitant]
  15. OMEPRAZOLE [Concomitant]
  16. TERAZOSIN HCL [Concomitant]
  17. ALBUTEROL/IPRATROP (SALBUTAMOL W/IPRATROPIUM) [Concomitant]
  18. FUROSEMIDE [Concomitant]
  19. EPOETIN ALFA (EPOETIN ALFA) [Concomitant]
  20. GABAPENTIN [Concomitant]
  21. LOPERAMIDE HCL (LOPERAMIDE HYDROCHLORIDE) [Concomitant]
  22. MOXIFLOXACIN HCL [Concomitant]

REACTIONS (1)
  - NEUTROPHIL COUNT DECREASED [None]
